FAERS Safety Report 11411266 (Version 1)
Quarter: 2015Q3

REPORT INFORMATION
  Report Type: Spontaneous
  Country: US (occurrence: US)
  Receive Date: 20150821
  Receipt Date: 20150821
  Transmission Date: 20151125
  Serious: No
  Sender: FDA-Public Use
  Company Number: US-ELI_LILLY_AND_COMPANY-US201005000171

PATIENT
  Age: 52 Year
  Sex: Female

DRUGS (2)
  1. HUMULIN R [Suspect]
     Active Substance: INSULIN HUMAN
     Dosage: 8 U, UNK
  2. HUMULIN R [Suspect]
     Active Substance: INSULIN HUMAN
     Dosage: 40 U, UNK

REACTIONS (2)
  - Blood glucose decreased [Recovered/Resolved]
  - Incorrect dose administered [Unknown]
